FAERS Safety Report 5449157-4 (Version None)
Quarter: 2007Q3

REPORT INFORMATION
  Report Type: 
  Country: None (occurrence: None)
  Receive Date: 20070911
  Receipt Date: 20070907
  Transmission Date: 20080115
  Serious: Yes (Hospitalization)
  Sender: FDA-Public Use
  Company Number: US-BOEHRINGER INGELHEIM PHARMACEUTICALS, INC.-2007-BP-20703BP

PATIENT
  Sex: Female

DRUGS (4)
  1. SPIRIVA [Suspect]
     Indication: LUNG DISORDER
     Route: 055
     Dates: start: 20070701
  2. BP MED [Concomitant]
  3. HORMONE [Concomitant]
  4. PAIN MED [Concomitant]

REACTIONS (1)
  - LUNG LOBECTOMY [None]
